FAERS Safety Report 16376434 (Version 1)
Quarter: 2019Q2

REPORT INFORMATION
  Report Type: Spontaneous
  Country: US (occurrence: US)
  Receive Date: 20190425
  Receipt Date: 20190425
  Transmission Date: 20190711
  Serious: No
  Sender: FDA-Public Use
  Company Number: None

PATIENT
  Age: 56 Year
  Sex: Male

DRUGS (14)
  1. LANTUS [Concomitant]
     Active Substance: INSULIN GLARGINE
  2. FLUOCINOLONE [Concomitant]
     Active Substance: FLUOCINOLONE
  3. OATMEAL BATH [Concomitant]
  4. PREDNISONE. [Concomitant]
     Active Substance: PREDNISONE
  5. ADVAIR HFA [Concomitant]
     Active Substance: FLUTICASONE PROPIONATE\SALMETEROL XINAFOATE
  6. LISINOPRIL. [Concomitant]
     Active Substance: LISINOPRIL
  7. TESTOSTERONE. [Concomitant]
     Active Substance: TESTOSTERONE
  8. OTEZLA [Suspect]
     Active Substance: APREMILAST
     Indication: PSORIATIC ARTHROPATHY
     Route: 048
     Dates: start: 201507
  9. HUMALOG [Concomitant]
     Active Substance: INSULIN LISPRO
  10. VENTOLIN [Concomitant]
     Active Substance: ALBUTEROL SULFATE
  11. NORCO [Concomitant]
     Active Substance: ACETAMINOPHEN\HYDROCODONE BITARTRATE
  12. MINERAL OIL. [Concomitant]
     Active Substance: MINERAL OIL
  13. GABAPENTIN. [Concomitant]
     Active Substance: GABAPENTIN
  14. CALCIUM [Concomitant]
     Active Substance: CALCIUM

REACTIONS (1)
  - Neoplasm skin [None]
